FAERS Safety Report 4549944-0 (Version None)
Quarter: 2005Q1

REPORT INFORMATION
  Report Type: 
  Country: None (occurrence: None)
  Receive Date: 20050112
  Receipt Date: 20041221
  Transmission Date: 20050727
  Serious: Yes (Hospitalization)
  Sender: FDA-Public Use
  Company Number: PHHO2004DE18219

PATIENT
  Age: 64 Year
  Sex: Male
  Weight: 82 kg

DRUGS (9)
  1. NEORAL [Suspect]
     Indication: RENAL TRANSPLANT
     Dosage: 250MG DAILY
     Dates: start: 20041214, end: 20041215
  2. NEORAL [Suspect]
     Dosage: 1000MG DAILY
     Route: 048
     Dates: start: 20041216, end: 20041220
  3. NEORAL [Suspect]
     Dosage: 950 MG/DAY
     Dates: start: 20041221, end: 20041221
  4. NEORAL [Suspect]
     Dosage: UNK, UNK
     Route: 048
     Dates: start: 20041202
  5. SULFAMETHOXAZOLE AND TRIMETHOPRIM [Suspect]
     Dosage: UNK, UNK
     Route: 048
     Dates: start: 20041202, end: 20050104
  6. LASIX [Suspect]
     Route: 048
     Dates: start: 20041202, end: 20050104
  7. FTY720 VS MYCOPHENOLATE MOFETIL [Suspect]
     Indication: RENAL TRANSPLANT
     Dosage: CODE NOT BROKEN (FULL DOSE)
     Route: 048
     Dates: start: 20041216, end: 20041220
  8. FTY720 VS MYCOPHENOLATE MOFETIL [Suspect]
     Dosage: CODE NOT BROKEN (50% DOSE)
     Route: 048
     Dates: start: 20041209, end: 20041215
  9. FTY720 VS MYCOPHENOLATE MOFETIL [Suspect]
     Dosage: CODE NOT BROKEN
     Dates: start: 20041202, end: 20041208

REACTIONS (4)
  - BILIRUBIN CONJUGATED INCREASED [None]
  - BLOOD BILIRUBIN INCREASED [None]
  - HAEMOLYSIS [None]
  - HAPTOGLOBIN DECREASED [None]
